FAERS Safety Report 6537118-3 (Version None)
Quarter: 2010Q1

REPORT INFORMATION
  Report Type: 
  Country: None (occurrence: None)
  Receive Date: 20100114
  Receipt Date: 20100104
  Transmission Date: 20100710
  Serious: Yes (Hospitalization)
  Sender: FDA-Public Use
  Company Number: US-ELI_LILLY_AND_COMPANY-US201001001907

PATIENT
  Sex: Male
  Weight: 81.633 kg

DRUGS (6)
  1. BYETTA [Suspect]
     Indication: TYPE 2 DIABETES MELLITUS
     Dosage: 5 UG, 2/D
     Route: 058
     Dates: start: 20070101, end: 20070101
  2. BYETTA [Suspect]
     Dosage: 10 UG, 2/D
     Route: 058
     Dates: start: 20070101
  3. MICARDIS [Concomitant]
     Indication: HYPERTENSION
     Dosage: UNK, DAILY (1/D)
     Route: 048
     Dates: start: 20070101
  4. SIMVASTATIN [Concomitant]
     Indication: BLOOD CHOLESTEROL
     Dosage: 40 MG, DAILY (1/D)
     Route: 048
  5. LOVAZA [Concomitant]
     Indication: BLOOD TRIGLYCERIDES
     Dosage: 1 G, DAILY (1/D)
     Route: 048
  6. CARDIZEM [Concomitant]
     Indication: HYPERTENSION
     Dosage: 240 MG, DAILY (1/D)
     Route: 048
     Dates: end: 20070101

REACTIONS (5)
  - BLOOD GLUCOSE INCREASED [None]
  - DRUG INEFFECTIVE [None]
  - DYSPNOEA [None]
  - HEART RATE DECREASED [None]
  - MUSCULAR WEAKNESS [None]
